FAERS Safety Report 17047820 (Version 2)
Quarter: 2019Q4

REPORT INFORMATION
  Report Type: Spontaneous
  Country: AR (occurrence: AR)
  Receive Date: 20191119
  Receipt Date: 20191128
  Transmission Date: 20200122
  Serious: Yes (Hospitalization, Other)
  Sender: FDA-Public Use
  Company Number: AR-PFIZER INC-2019495561

PATIENT
  Age: 76 Year
  Sex: Female

DRUGS (1)
  1. XELJANZ XR [Suspect]
     Active Substance: TOFACITINIB CITRATE
     Indication: RHEUMATOID ARTHRITIS
     Dosage: 11 MG, 1X/DAY
     Dates: start: 20171106

REACTIONS (5)
  - Eye swelling [Not Recovered/Not Resolved]
  - Cataract [Unknown]
  - Skin discolouration [Unknown]
  - Blindness [Unknown]
  - Eye haematoma [Not Recovered/Not Resolved]

NARRATIVE: CASE EVENT DATE: 201910
